FAERS Safety Report 23748182 (Version 4)
Quarter: 2024Q2

REPORT INFORMATION
  Report Type: Spontaneous
  Country: US (occurrence: US)
  Receive Date: 20240416
  Receipt Date: 20240605
  Transmission Date: 20240716
  Serious: Yes (Other)
  Sender: FDA-Public Use
  Company Number: US-SA-2024SA109604

PATIENT
  Age: 16 Month
  Sex: Male

DRUGS (2)
  1. ALPROLIX [Suspect]
     Active Substance: EFTRENONACOG ALFA
     Indication: Prophylaxis
     Dosage: INFUSE 650/1300 UNITS (+/-10%) WEEKLY FOR PROPHYLAXIS AND FOR SEVERE BLEEDS GREATER THAN 48 HOURS FR
     Route: 042
  2. ALPROLIX [Suspect]
     Active Substance: EFTRENONACOG ALFA
     Indication: Prophylaxis
     Dosage: INFUSE 650/1300 UNITS (+/-10%) WEEKLY FOR PROPHYLAXIS AND FOR SEVERE BLEEDS GREATER THAN 48 HOURS FR
     Route: 042

REACTIONS (6)
  - Seizure [Unknown]
  - Injection site haematoma [Unknown]
  - Gingival bleeding [Unknown]
  - Influenza [Unknown]
  - Pyrexia [Unknown]
  - Pyrexia [Unknown]

NARRATIVE: CASE EVENT DATE: 20240322
